FAERS Safety Report 7357327-3 (Version None)
Quarter: 2011Q1

REPORT INFORMATION
  Report Type: 
  Country: None (occurrence: None)
  Receive Date: 20110308
  Receipt Date: 20110222
  Transmission Date: 20110831
  Serious: Yes (Other)
  Sender: FDA-Public Use
  Company Number: CPL-2011-0001

PATIENT
  Age: 21 Year
  Sex: Male

DRUGS (3)
  1. LIOTHYRONINE SODIUM TABLETS USP(LIOTHYRONINE SODIUM) TABLET, UNKMCG [Suspect]
     Indication: MAJOR DEPRESSION
     Dosage: 40 MCG, QD, ORAL
     Route: 048
  2. SERTRALINE HYDROCHLORIDE [Concomitant]
  3. REBOXETINE() [Suspect]
     Indication: MAJOR DEPRESSION
     Dosage: 4 MG, QD, ORAL
     Route: 048

REACTIONS (7)
  - INITIAL INSOMNIA [None]
  - HYPERHIDROSIS [None]
  - ANXIETY [None]
  - TREMOR [None]
  - IRRITABILITY [None]
  - DRUG INTERACTION [None]
  - CONDITION AGGRAVATED [None]
